FAERS Safety Report 9542496 (Version 1)
Quarter: 2013Q3

REPORT INFORMATION
  Report Type: Spontaneous
  Country: CH (occurrence: CH)
  Receive Date: 20130923
  Receipt Date: 20130923
  Transmission Date: 20140515
  Serious: Yes (Hospitalization)
  Sender: FDA-Public Use
  Company Number: PHHY2013CH104360

PATIENT
  Age: 84 Year
  Sex: Male
  Weight: 70 kg

DRUGS (8)
  1. RASILEZ HCT [Suspect]
     Dosage: 1 DF, QD
     Route: 048
     Dates: end: 20130621
  2. LAXOBERON [Suspect]
     Dosage: 20 DRP, QD
     Route: 048
     Dates: start: 201212, end: 20130627
  3. MOVICOL [Suspect]
     Dosage: 1 DF, QD
     Route: 048
     Dates: start: 201212
  4. PLAVIX [Concomitant]
     Dosage: 75 MG QD
     Route: 048
  5. CORDARONE [Concomitant]
     Dosage: 200 MG QD
     Route: 048
     Dates: end: 20130621
  6. ZANIDIP [Concomitant]
     Dosage: 20 MG QD
     Route: 048
  7. SORTIS [Concomitant]
     Dosage: 10 MG QD
     Route: 048
  8. PRADIF T [Concomitant]
     Dosage: 400 UG QD
     Route: 048

REACTIONS (3)
  - Diarrhoea [Recovered/Resolved]
  - Hyponatraemia [Recovering/Resolving]
  - Drug abuse [Recovered/Resolved]
